FAERS Safety Report 9669605 (Version 1)
Quarter: 2013Q4

REPORT INFORMATION
  Report Type: Spontaneous
  Country: None (occurrence: None)
  Receive Date: 20131104
  Receipt Date: 20131104
  Transmission Date: 20140711
  Serious: No
  Sender: FDA-Public Use
  Company Number: None

PATIENT
  Age: 54 Year
  Sex: Male
  Weight: 114.31 kg

DRUGS (1)
  1. DELSYM [Suspect]
     Indication: ANTITUSSIVE THERAPY
     Route: 048
     Dates: start: 20131102

REACTIONS (5)
  - Dizziness [None]
  - Heart rate increased [None]
  - Heart rate increased [None]
  - Feeling cold [None]
  - Tinnitus [None]
